FAERS Safety Report 5116513-3 (Version None)
Quarter: 2006Q3

REPORT INFORMATION
  Report Type: 
  Country: None (occurrence: None)
  Receive Date: 20060928
  Receipt Date: 20060919
  Transmission Date: 20061208
  Serious: Yes (Other)
  Sender: FDA-Public Use
  Company Number: PHBS2006JP14437

PATIENT
  Age: 26 Year
  Sex: Female

DRUGS (4)
  1. TEGRETOL [Suspect]
     Dosage: 900 MG/DAY
     Route: 048
  2. ALEVIATIN [Concomitant]
  3. OSPOLOT [Concomitant]
  4. PREDONINE [Concomitant]

REACTIONS (1)
  - ANAEMIA MEGALOBLASTIC [None]
